FAERS Safety Report 6294595-3 (Version None)
Quarter: 2009Q3

REPORT INFORMATION
  Report Type: 
  Country: None (occurrence: None)
  Receive Date: 20090803
  Receipt Date: 20090625
  Transmission Date: 20100115
  Serious: No
  Sender: FDA-Public Use
  Company Number: US-BAYER-200926170NA

PATIENT
  Age: 62 Year
  Sex: Female

DRUGS (3)
  1. ULTRAVIST 300 [Suspect]
     Indication: COMPUTERISED TOMOGRAM ABDOMEN
     Dosage: TOTAL DAILY DOSE: 100 ML
     Route: 042
     Dates: start: 20090618, end: 20090618
  2. BENADRYL [Concomitant]
     Dosage: AS USED: 50 MG
     Route: 048
  3. PREDNISONE [Concomitant]
     Dosage: 100 ML X 2

REACTIONS (3)
  - DYSPHONIA [None]
  - PRURITUS [None]
  - URTICARIA [None]
